FAERS Safety Report 9378082 (Version 1)
Quarter: 2013Q2

REPORT INFORMATION
  Report Type: Spontaneous
  Country: IT (occurrence: None)
  Receive Date: 20130625
  Receipt Date: 20130625
  Transmission Date: 20140414
  Serious: Yes (Hospitalization, Other)
  Sender: FDA-Public Use
  Company Number: CL-498-2013

PATIENT
  Age: 64 Year
  Sex: Male
  Weight: 59 kg

DRUGS (6)
  1. ONDANSETRON HYDROCHLORIDE [Suspect]
     Indication: PREMEDICATION
     Dosage: 8 MG  CYCLIC  IV
     Route: 042
     Dates: start: 20121220, end: 20130426
  2. AVASTIN [Suspect]
     Indication: COLON NEOPLASM
     Dosage: 400 MG CYCLIC  IV
     Route: 042
     Dates: start: 20130222, end: 20130426
  3. RANITIDINE HYDROCHLORIDE [Concomitant]
  4. CAPECITABINE [Concomitant]
  5. DEXAMETHASONE PHOSPHATE [Concomitant]
  6. IRINOTECAN HYDROCHLORIDE [Suspect]
     Indication: COLON NEOPLASM
     Dosage: 180 MG X BSA (CYCLIC)
     Dates: start: 20121220, end: 20130426

REACTIONS (4)
  - Subileus [None]
  - Blood pressure inadequately controlled [None]
  - Hypertension [None]
  - Vomiting [None]
